FAERS Safety Report 7332387-4 (Version None)
Quarter: 2011Q1

REPORT INFORMATION
  Report Type: 
  Country: None (occurrence: None)
  Receive Date: 20110304
  Receipt Date: 20110217
  Transmission Date: 20110831
  Serious: Yes (Death)
  Sender: FDA-Public Use
  Company Number: B0702581A

PATIENT
  Sex: Male

DRUGS (10)
  1. MARAVIROC [Suspect]
     Indication: HIV INFECTION
     Dosage: 150MG TWICE PER DAY
     Route: 048
     Dates: start: 20060420, end: 20060911
  2. COMBIVIR [Suspect]
     Indication: HIV INFECTION
     Route: 048
     Dates: start: 20060420, end: 20060911
  3. SUSTIVA [Suspect]
     Indication: HIV INFECTION
     Dosage: 600MG PER DAY
     Route: 048
     Dates: start: 20060420, end: 20060911
  4. METFORMIN [Concomitant]
     Route: 048
     Dates: start: 20060810, end: 20110117
  5. ASCORBIC ACID [Concomitant]
     Route: 048
     Dates: start: 20070820, end: 20110117
  6. DISPRIN [Concomitant]
     Route: 048
     Dates: start: 20060328, end: 20110117
  7. VITAMIN B COMPLEX CAP [Concomitant]
     Route: 048
     Dates: start: 20070820, end: 20110117
  8. AMITRIPTYLINE [Concomitant]
     Route: 048
     Dates: start: 20060306, end: 20110117
  9. GLICLAZIDE [Concomitant]
     Route: 048
     Dates: start: 20051001, end: 20110117
  10. PREXUM [Concomitant]
     Route: 048
     Dates: start: 20060328, end: 20110117

REACTIONS (1)
  - DEATH [None]
